FAERS Safety Report 25872128 (Version 1)
Quarter: 2025Q4

REPORT INFORMATION
  Report Type: Spontaneous
  Country: EU (occurrence: EU)
  Receive Date: 20251002
  Receipt Date: 20251002
  Transmission Date: 20260117
  Serious: Yes (Other)
  Sender: GLAXOSMITHKLINE
  Company Number: None

PATIENT
  Age: 73 Year
  Sex: Female

DRUGS (4)
  1. JEMPERLI [Suspect]
     Active Substance: DOSTARLIMAB-GXLY
     Indication: Endometrial adenocarcinoma
     Dosage: 500 MG, Q3W (5 CYCLES OF TRIPLE THERAPY)
  2. JEMPERLI [Suspect]
     Active Substance: DOSTARLIMAB-GXLY
     Dosage: 1000 MG, Q6W (11 CYCLES MONOTHERAPY)
  3. CARBOPLATIN [Concomitant]
     Active Substance: CARBOPLATIN
     Indication: Product used for unknown indication
     Dosage: UNK
     Route: 065
  4. PACLITAXEL [Concomitant]
     Active Substance: PACLITAXEL
     Indication: Product used for unknown indication
     Dosage: UNK
     Route: 065

REACTIONS (1)
  - Lichen planus [Recovering/Resolving]

NARRATIVE: CASE EVENT DATE: 20250729
